FAERS Safety Report 5719732-8 (Version None)
Quarter: 2008Q2

REPORT INFORMATION
  Report Type: 
  Country: None (occurrence: None)
  Receive Date: 20080423
  Receipt Date: 20071010
  Transmission Date: 20081010
  Serious: Yes (Other)
  Sender: FDA-Public Use
  Company Number: 236055

PATIENT

DRUGS (2)
  1. BEVACIZUMAB(BEVACIZUMAB) POWDER AND SOLVENT FOR INFUSION, 100MG [Suspect]
     Indication: NON-SMALL CELL LUNG CANCER
  2. ERLOTINIB(ERLOTINIB) TABLET [Suspect]
     Indication: NON-SMALL CELL LUNG CANCER

REACTIONS (1)
  - INTESTINAL PERFORATION [None]
